FAERS Safety Report 22159887 (Version 1)
Quarter: 2023Q1

REPORT INFORMATION
  Report Type: Spontaneous
  Country: JP (occurrence: JP)
  Receive Date: 20230331
  Receipt Date: 20230331
  Transmission Date: 20230417
  Serious: Yes (Hospitalization, Other)
  Sender: FDA-Public Use
  Company Number: JP-GLAXOSMITHKLINE-JP2023JPN045455

PATIENT

DRUGS (6)
  1. LAMICTAL [Suspect]
     Active Substance: LAMOTRIGINE
     Indication: Bipolar disorder
     Dosage: 25 MG, QD
     Route: 048
     Dates: start: 20221128, end: 20221211
  2. LAMICTAL [Suspect]
     Active Substance: LAMOTRIGINE
     Dosage: 50 MG, QD
     Route: 048
     Dates: start: 20221212, end: 20221213
  3. URSODIOL [Suspect]
     Active Substance: URSODIOL
     Dosage: UNK, COMPLETED WITH THE MORNING DOSE
     Route: 048
     Dates: start: 20230105, end: 20230106
  4. LEXAPRO TABLETS (ESCITALOPRAM OXALATE) [Concomitant]
     Dosage: 20 MG, QD, AFTER DINNER
     Route: 048
     Dates: start: 20211206, end: 20221227
  5. LITHIUM CARBONATE [Concomitant]
     Active Substance: LITHIUM CARBONATE
     Dosage: 200 MG, BID
     Route: 048
     Dates: start: 20221003, end: 20221227
  6. HERBALS [Concomitant]
     Active Substance: HERBALS
     Dosage: 3 G, BID, BEFORE BREAKFAST AND DINNER
     Dates: start: 20220809, end: 20221215

REACTIONS (20)
  - Stevens-Johnson syndrome [Recovered/Resolved]
  - Hepatic function abnormal [Recovering/Resolving]
  - Eye discharge [Unknown]
  - Ocular hyperaemia [Recovering/Resolving]
  - Oral mucosal eruption [Unknown]
  - Oropharyngeal pain [Unknown]
  - Erythema [Unknown]
  - Drug-induced liver injury [Unknown]
  - Rhinorrhoea [Unknown]
  - Cough [Unknown]
  - Pruritus [Unknown]
  - Pain in extremity [Unknown]
  - Vomiting [Unknown]
  - Blister [Unknown]
  - Nikolsky^s sign [Unknown]
  - Rash [Recovered/Resolved]
  - Lip erosion [Recovering/Resolving]
  - Abdominal pain upper [Unknown]
  - Hyperplastic cholecystopathy [Unknown]
  - Inappropriate schedule of product administration [Unknown]

NARRATIVE: CASE EVENT DATE: 20221212
